FAERS Safety Report 10416916 (Version 5)
Quarter: 2015Q1

REPORT INFORMATION
  Report Type: Spontaneous
  Country: TR (occurrence: TR)
  Receive Date: 20140828
  Receipt Date: 20150106
  Transmission Date: 20150720
  Serious: Yes (Other)
  Sender: FDA-Public Use
  Company Number: PHHY2014TR106118

PATIENT
  Age: 5 Year
  Sex: Male

DRUGS (1)
  1. TRILEPTAL [Suspect]
     Active Substance: OXCARBAZEPINE
     Indication: EPILEPSY
     Dosage: 5 MG, BID
     Route: 048
     Dates: start: 20140819

REACTIONS (2)
  - Poor quality drug administered [Unknown]
  - Vomiting [Recovered/Resolved]
